FAERS Safety Report 9274480 (Version 1)
Quarter: 2013Q2

REPORT INFORMATION
  Report Type: Spontaneous
  Country: BR (occurrence: BR)
  Receive Date: 20130507
  Receipt Date: 20130507
  Transmission Date: 20140414
  Serious: Yes (Other)
  Sender: FDA-Public Use
  Company Number: BR-AMGEN-BRASP2012074219

PATIENT
  Age: 53 Year
  Sex: Female
  Weight: 120 kg

DRUGS (5)
  1. ENBREL [Suspect]
     Indication: PSORIATIC ARTHROPATHY
     Dosage: 50 MG, ONCE WEEKLY
     Route: 058
     Dates: start: 201201
  2. CYMBALTA [Concomitant]
     Dosage: STRENGTH 60 MG
  3. CORTISONE [Concomitant]
     Dosage: STRENGTH 5 MG
  4. AAS [Concomitant]
     Dosage: UNK
  5. HARPAGOPHYTUM PROCUMBENS [Concomitant]
     Dosage: STRENGTH 400 MG

REACTIONS (4)
  - Lower limb fracture [Unknown]
  - Influenza [Not Recovered/Not Resolved]
  - Injection site erythema [Not Recovered/Not Resolved]
  - Injection site pain [Not Recovered/Not Resolved]
